FAERS Safety Report 7475574-7 (Version None)
Quarter: 2011Q2

REPORT INFORMATION
  Report Type: 
  Country: None (occurrence: None)
  Receive Date: 20110512
  Receipt Date: 20110505
  Transmission Date: 20111010
  Serious: Yes (Death)
  Sender: FDA-Public Use
  Company Number: CA-CELGENEUS-028-C5013-11050629

PATIENT
  Sex: Male
  Weight: 82.8 kg

DRUGS (12)
  1. ALLOPURINOL [Concomitant]
     Indication: PROPHYLAXIS
     Dosage: 300 MILLIGRAM
     Route: 048
     Dates: start: 20110415
  2. LACTULOSE [Concomitant]
     Dosage: 15-30 ML
     Route: 048
     Dates: start: 20110426
  3. COLACE [Concomitant]
     Dosage: 100 MILLIGRAM
     Route: 048
     Dates: start: 20110426
  4. PHOSPHATE NOVARTIS [Concomitant]
     Indication: SUPPLEMENTATION THERAPY
     Dosage: 500 MILLIGRAM
     Route: 048
     Dates: start: 20110428
  5. MAGNESIUM OXIDE [Concomitant]
     Dosage: 400 MILLIGRAM
     Route: 048
     Dates: start: 20090101
  6. SENOKOT [Concomitant]
     Dosage: 1-2 TABS
     Route: 048
     Dates: start: 20110426
  7. VITAMIN D [Concomitant]
     Indication: SUPPLEMENTATION THERAPY
     Dosage: 2000 MICROGRAM
     Route: 048
     Dates: start: 20050101
  8. LENALIDOMIDE [Suspect]
     Dosage: LEVEL 0
     Route: 048
     Dates: start: 20110418, end: 20110428
  9. PAMIDRONATE DISODIUM [Concomitant]
     Dosage: 90 MILLIGRAM
     Route: 051
     Dates: start: 20110421, end: 20110421
  10. POTASSIUM PHOSPHATES [Concomitant]
     Dosage: 30 MILLIEQUIVALENTS
     Route: 051
     Dates: start: 20110426
  11. PREDNISONE [Concomitant]
     Dosage: 30 MILLIGRAM
     Route: 048
     Dates: start: 20110428
  12. DILAUDID [Concomitant]
     Indication: PAIN
     Dosage: 1-2 TABS
     Route: 048
     Dates: start: 20110428

REACTIONS (1)
  - DEATH [None]
